FAERS Safety Report 9746341 (Version 1)
Quarter: 2013Q4

REPORT INFORMATION
  Report Type: Spontaneous
  Country: US (occurrence: None)
  Receive Date: 20131209
  Receipt Date: 20131209
  Transmission Date: 20140711
  Serious: Yes (Other)
  Sender: FDA-Public Use
  Company Number: None

PATIENT
  Age: 38 Year
  Sex: Male
  Weight: 104.33 kg

DRUGS (1)
  1. VYVANCE [Suspect]
     Indication: ATTENTION DEFICIT/HYPERACTIVITY DISORDER

REACTIONS (7)
  - Depression [None]
  - Erectile dysfunction [None]
  - Irritability [None]
  - Fatigue [None]
  - Asthenia [None]
  - Apathy [None]
  - Sleep disorder [None]
